FAERS Safety Report 7967052-3 (Version None)
Quarter: 2011Q4

REPORT INFORMATION
  Report Type: 
  Country: None (occurrence: None)
  Receive Date: 20111209
  Receipt Date: 20111208
  Transmission Date: 20120403
  Serious: No
  Sender: FDA-Public Use
  Company Number: US-PFIZER INC-2011300299

PATIENT
  Sex: Female

DRUGS (3)
  1. DILANTIN [Concomitant]
     Indication: EPILEPSY
     Dosage: 200 MG, UNK
  2. CHANTIX [Suspect]
     Dosage: UNK
     Route: 048
     Dates: start: 20110101, end: 20111201
  3. CHANTIX [Suspect]
     Indication: SMOKING CESSATION THERAPY
     Dosage: 0.5 MG, DAILY
     Route: 048
     Dates: start: 20111101, end: 20110101

REACTIONS (2)
  - RASH [None]
  - EYE IRRITATION [None]
